FAERS Safety Report 19634150 (Version 1)
Quarter: 2021Q3

REPORT INFORMATION
  Report Type: Spontaneous
  Country: US (occurrence: US)
  Receive Date: 20210730
  Receipt Date: 20210730
  Transmission Date: 20211014
  Serious: No
  Sender: FDA-Public Use
  Company Number: US-BAUSCH-BL-2021-022159

PATIENT
  Sex: Female

DRUGS (1)
  1. TRETINOIN 0.1 % CREAM [Suspect]
     Active Substance: TRETINOIN
     Indication: PRODUCT USED FOR UNKNOWN INDICATION
     Dosage: USED AT NIGHT
     Route: 065

REACTIONS (1)
  - Hypersensitivity [Unknown]
